FAERS Safety Report 24392159 (Version 1)
Quarter: 2024Q4

REPORT INFORMATION
  Report Type: Spontaneous
  Country: CA (occurrence: CA)
  Receive Date: 20241003
  Receipt Date: 20241003
  Transmission Date: 20250115
  Serious: Yes (Death, Other)
  Sender: PFIZER
  Company Number: CA-PFIZER INC-202400267724

PATIENT
  Age: 76 Year
  Sex: Female

DRUGS (3)
  1. HEPARIN SODIUM [Suspect]
     Active Substance: HEPARIN SODIUM
     Dosage: UNK
     Route: 042
  2. ENOXAPARIN [Suspect]
     Active Substance: ENOXAPARIN
     Dosage: 60 MG, 2X/DAY
     Route: 058
  3. WARFARIN [Suspect]
     Active Substance: WARFARIN
     Dosage: 4 MG, 1X/DAY

REACTIONS (5)
  - Haemoglobin decreased [Fatal]
  - Hypotension [Fatal]
  - Hypovolaemic shock [Fatal]
  - Retroperitoneal haemorrhage [Fatal]
  - Shock haemorrhagic [Fatal]
